FAERS Safety Report 23473562 (Version 1)
Quarter: 2024Q1

REPORT INFORMATION
  Report Type: Spontaneous
  Country: US (occurrence: US)
  Receive Date: 20240203
  Receipt Date: 20240203
  Transmission Date: 20240410
  Serious: No
  Sender: FDA-Public Use
  Company Number: US-Ipsen Biopharmaceuticals, Inc.-2024-00970

PATIENT
  Sex: Female

DRUGS (3)
  1. DYSPORT [Suspect]
     Active Substance: ABOBOTULINUMTOXINA
     Indication: Skin wrinkling
     Dosage: 50 UNITS AT GLABELLA AND FOREHEAD AT 20 UNITS
     Route: 065
  2. DYSPORT [Suspect]
     Active Substance: ABOBOTULINUMTOXINA
     Indication: Skin wrinkling
     Dosage: 50 UNITS AT GLABELLA AND FOREHEAD AT 12 UNITS
     Route: 065
  3. DYSPORT [Suspect]
     Active Substance: ABOBOTULINUMTOXINA
     Indication: Off label use

REACTIONS (4)
  - Drug ineffective [Unknown]
  - Off label use [Unknown]
  - Intentional product misuse [Unknown]
  - Off label use [Unknown]
